FAERS Safety Report 12439965 (Version 1)
Quarter: 2016Q2

REPORT INFORMATION
  Report Type: Spontaneous
  Country: CL (occurrence: CL)
  Receive Date: 20160606
  Receipt Date: 20160606
  Transmission Date: 20160815
  Serious: Yes (Other)
  Sender: FDA-Public Use
  Company Number: CL-PFIZER INC-2016282732

PATIENT
  Age: 8 Year

DRUGS (1)
  1. ZYVOX [Suspect]
     Active Substance: LINEZOLID

REACTIONS (4)
  - Osteomyelitis [Unknown]
  - Staphylococcal infection [Unknown]
  - Soft tissue infection [Unknown]
  - Skin infection [Unknown]
